FAERS Safety Report 7541350-X (Version None)
Quarter: 2011Q2

REPORT INFORMATION
  Report Type: 
  Country: None (occurrence: None)
  Receive Date: 20110612
  Receipt Date: 20110608
  Transmission Date: 20111010
  Serious: Yes (Other)
  Sender: FDA-Public Use
  Company Number: PT-BRISTOL-MYERS SQUIBB COMPANY-15818297

PATIENT
  Age: 7 Decade
  Sex: Male

DRUGS (1)
  1. SPRYCEL [Suspect]
     Dosage: DURATION: SEVERAL YEARS

REACTIONS (2)
  - CALCULUS BLADDER [None]
  - PLEURAL EFFUSION [None]
